FAERS Safety Report 5403040-9 (Version None)
Quarter: 2007Q3

REPORT INFORMATION
  Report Type: 
  Country: None (occurrence: None)
  Receive Date: 20070713
  Receipt Date: 20070412
  Transmission Date: 20080115
  Serious: No
  Sender: FDA-Public Use
  Company Number: 492543

PATIENT
  Age: 61 Year
  Sex: Female

DRUGS (4)
  1. BONIVA [Suspect]
     Indication: PROPHYLAXIS
     Dosage: 150 MG 1 PER MONTH ORAL
     Route: 048
     Dates: start: 20040615, end: 20070215
  2. WELLBUTRIN [Concomitant]
  3. VITAMINS NOS (MULTIVITAMIN NOS) [Concomitant]
  4. CALCIUM NOS (CALCIUM) [Concomitant]

REACTIONS (2)
  - GINGIVAL DISORDER [None]
  - OSTEONECROSIS [None]
